FAERS Safety Report 8329559 (Version 5)
Quarter: 2013Q1

REPORT INFORMATION
  Report Type: Spontaneous
  Country: US (occurrence: US)
  Receive Date: 20120110
  Receipt Date: 20130128
  Transmission Date: 20140127
  Serious: Yes (Hospitalization, Other)
  Sender: FDA-Public Use
  Company Number: US-ROCHE-1006246

PATIENT
  Age: 19 Year
  Sex: Male
  Weight: 59.02 kg

DRUGS (3)
  1. ACCUTANE [Suspect]
     Indication: ACNE
     Route: 048
     Dates: start: 199707
  2. ACCUTANE [Suspect]
     Route: 048
     Dates: start: 19980213, end: 199810
  3. ACCUTANE [Suspect]
     Route: 048
     Dates: start: 199903, end: 199909

REACTIONS (11)
  - Crohn^s disease [Unknown]
  - Inflammatory bowel disease [Unknown]
  - Colitis ulcerative [Unknown]
  - Anal abscess [Unknown]
  - Anal fistula [Unknown]
  - Emotional distress [Unknown]
  - Erythema nodosum [Unknown]
  - Epistaxis [Unknown]
  - Haemangioma [Unknown]
  - Irritable bowel syndrome [Unknown]
  - Haemorrhoids [Unknown]
